FAERS Safety Report 9617060 (Version 1)
Quarter: 2013Q4

REPORT INFORMATION
  Report Type: Spontaneous
  Country: US (occurrence: US)
  Receive Date: 20131011
  Receipt Date: 20131011
  Transmission Date: 20140711
  Serious: Yes (Hospitalization)
  Sender: FDA-Public Use
  Company Number: US-BIOGENIDEC-2013BI096897

PATIENT
  Age: 37 Year
  Sex: Female

DRUGS (2)
  1. AVONEX [Suspect]
     Indication: MULTIPLE SCLEROSIS
     Route: 030
     Dates: start: 20110426, end: 20111010
  2. AVONEX [Suspect]
     Indication: MULTIPLE SCLEROSIS
     Route: 030
     Dates: end: 20130814

REACTIONS (3)
  - Surgery [Recovered/Resolved]
  - Haemorrhage [Not Recovered/Not Resolved]
  - Multiple sclerosis relapse [Recovered/Resolved]
